FAERS Safety Report 20632689 (Version 15)
Quarter: 2022Q4

REPORT INFORMATION
  Report Type: Report from Study
  Country: GB (occurrence: GB)
  Receive Date: 20220324
  Receipt Date: 20221228
  Transmission Date: 20230112
  Serious: Yes (Life-Threatening, Hospitalization, Other)
  Sender: FDA-Public Use
  Company Number: None

PATIENT
  Age: 69 Year
  Sex: Female

DRUGS (92)
  1. TRASTUZUMAB [Suspect]
     Active Substance: TRASTUZUMAB
     Indication: Breast cancer metastatic
     Dosage: LOADING DOSE, 16.6 MG, MAINTENANCE DOSE
     Route: 042
     Dates: start: 20151105, end: 20151105
  2. TRASTUZUMAB [Suspect]
     Active Substance: TRASTUZUMAB
     Dosage: MAINTENANCE DOSE
     Route: 042
     Dates: start: 20151203, end: 20180427
  3. TRASTUZUMAB [Suspect]
     Active Substance: TRASTUZUMAB
     Dosage: 336 MILLIGRAM, Q3W
     Route: 042
     Dates: start: 20180518, end: 20190327
  4. TRASTUZUMAB [Suspect]
     Active Substance: TRASTUZUMAB
     Dosage: 336 MG,Q3W DOSE FORM: 230, (CUMULATIVE DOS
     Route: 042
     Dates: start: 20180518, end: 20190427
  5. TRASTUZUMAB [Suspect]
     Active Substance: TRASTUZUMAB
     Dosage: 450 MILLIGRAM, Q3W
     Route: 042
     Dates: start: 20151105
  6. TRASTUZUMAB [Suspect]
     Active Substance: TRASTUZUMAB
     Dosage: 350 MILLIGRAM, Q3W,
     Route: 042
     Dates: start: 20151203, end: 20180327
  7. TRASTUZUMAB [Suspect]
     Active Substance: TRASTUZUMAB
     Dosage: UNK UNK, QW
     Route: 042
     Dates: start: 20151203, end: 20180427
  8. PACLITAXEL [Suspect]
     Active Substance: PACLITAXEL
     Indication: Breast cancer metastatic
     Dosage: 138 MG, MONTHLY 4 WEEKS
     Route: 042
     Dates: start: 20151203, end: 20160203
  9. PACLITAXEL [Suspect]
     Active Substance: PACLITAXEL
     Dosage: 138 MILLIGRAM, MONTHLY,
     Route: 042
     Dates: start: 20151203, end: 20160203
  10. PACLITAXEL [Suspect]
     Active Substance: PACLITAXEL
     Dosage: 120 MILLIGRAM, MONTHLY
     Route: 042
     Dates: start: 20151210
  11. PACLITAXEL [Suspect]
     Active Substance: PACLITAXEL
     Dosage: 139 MILLIGRAM, Q28D (Q4W)
     Route: 042
     Dates: start: 20151210
  12. PACLITAXEL [Suspect]
     Active Substance: PACLITAXEL
     Dosage: 134 MG EVERY 4 WEEKS (DOSE: 229.5 MG)
     Route: 042
     Dates: start: 20151210
  13. PACLITAXEL [Suspect]
     Active Substance: PACLITAXEL
     Dosage: 120 MG MONTHLY, EVERY 4 WEEKS
     Route: 042
     Dates: start: 20160204, end: 20160218
  14. PACLITAXEL [Suspect]
     Active Substance: PACLITAXEL
     Dosage: 120 MILLIGRAM, MONTHLY,
     Route: 042
     Dates: start: 20160204, end: 20160218
  15. PACLITAXEL [Suspect]
     Active Substance: PACLITAXEL
     Dosage: 120 MILLIGRAM, MONTHLY,
     Route: 042
     Dates: start: 20160204, end: 20160218
  16. PACLITAXEL [Suspect]
     Active Substance: PACLITAXEL
     Dosage: 120 MILLIGRAM, MONTHLY,
     Route: 042
     Dates: start: 20160204, end: 20160218
  17. PACLITAXEL [Suspect]
     Active Substance: PACLITAXEL
     Dosage: 125 MG Q4W
     Route: 042
     Dates: start: 20160204, end: 20160218
  18. PACLITAXEL [Suspect]
     Active Substance: PACLITAXEL
     Dosage: 102 MILLIGRAM, Q28D
     Route: 042
     Dates: start: 20160204, end: 20160218
  19. PACLITAXEL [Suspect]
     Active Substance: PACLITAXEL
     Dosage: 68 MILLIGRAM, QW,
     Route: 042
     Dates: start: 20160303, end: 20160310
  20. PACLITAXEL [Suspect]
     Active Substance: PACLITAXEL
     Dosage: 68 MILLIGRAM, QW,
     Route: 042
     Dates: start: 20160303, end: 20160310
  21. PACLITAXEL [Suspect]
     Active Substance: PACLITAXEL
     Dosage: 102 MG WEEKLY
     Route: 042
     Dates: start: 20160303, end: 20160310
  22. PACLITAXEL [Suspect]
     Active Substance: PACLITAXEL
     Dosage: 44.6 MG, EVERY 4 DAYS, 34.75 MG CD, 884 MG
     Route: 042
     Dates: start: 20151210
  23. DOCETAXEL [Suspect]
     Active Substance: DOCETAXEL
     Indication: Breast cancer metastatic
     Dosage: 124 MILLIGRAM, Q3W,
     Route: 042
     Dates: start: 20151106, end: 20151106
  24. DOCETAXEL [Suspect]
     Active Substance: DOCETAXEL
     Dosage: 124 MILLIGRAM, Q3W
     Route: 042
     Dates: start: 20151106, end: 20151106
  25. DOCETAXEL [Suspect]
     Active Substance: DOCETAXEL
     Dosage: 124 MILLIGRAM, Q2W
     Route: 042
     Dates: start: 20151106, end: 20151106
  26. HERCEPTIN [Suspect]
     Active Substance: TRASTUZUMAB
     Indication: Breast cancer metastatic
     Dosage: 450 MILLIGRAM, 16.6 MG,
     Route: 042
     Dates: start: 20151105, end: 20151105
  27. HERCEPTIN [Suspect]
     Active Substance: TRASTUZUMAB
     Dosage: 350 MILLIGRAM, Q3W,
     Route: 042
     Dates: start: 20151203
  28. HERCEPTIN [Suspect]
     Active Substance: TRASTUZUMAB
     Dosage: 336 MILLIGRAM, Q3W
     Route: 042
     Dates: start: 20180518
  29. HERCEPTIN [Suspect]
     Active Substance: TRASTUZUMAB
     Dosage: UNK, QW, 300 UNK, TIW
     Route: 042
     Dates: start: 20151203, end: 20180427
  30. PERTUZUMAB [Suspect]
     Active Substance: PERTUZUMAB
     Indication: Breast cancer metastatic
     Dosage: 840 MILLIGRAM, LOADING DOSE
     Route: 042
     Dates: start: 20151105, end: 20151105
  31. PERTUZUMAB [Suspect]
     Active Substance: PERTUZUMAB
     Dosage: 840 MILLIGRAM, TOTAL
     Route: 042
     Dates: start: 20151105, end: 20151105
  32. PERTUZUMAB [Suspect]
     Active Substance: PERTUZUMAB
     Dosage: 420 MILLIGRAM, Q3W,
     Route: 042
     Dates: start: 20151203
  33. PACLITAXEL [Suspect]
     Active Substance: PACLITAXEL
     Indication: Breast cancer metastatic
     Dosage: 138 MILLIGRAM, Q28D
     Route: 042
     Dates: start: 20151203
  34. PACLITAXEL [Suspect]
     Active Substance: PACLITAXEL
     Dosage: 138 MILLIGRAM, Q28D
     Route: 042
     Dates: start: 20151210
  35. PACLITAXEL [Suspect]
     Active Substance: PACLITAXEL
     Dosage: 120 MILLIGRAM, Q28D
     Route: 042
     Dates: start: 20160204
  36. PACLITAXEL [Suspect]
     Active Substance: PACLITAXEL
     Dosage: 68 MILLIGRAM, QW,
     Route: 042
     Dates: start: 20160303
  37. PACLITAXEL [Suspect]
     Active Substance: PACLITAXEL
     Dosage: 102 MILLIGRAM, Q28D
     Route: 042
     Dates: start: 20160204, end: 20160218
  38. PACLITAXEL [Suspect]
     Active Substance: PACLITAXEL
     Dosage: 138 MILLIGRAM,
     Route: 042
     Dates: start: 20151203, end: 20160203
  39. LORATADINE [Concomitant]
     Active Substance: LORATADINE
     Indication: Product used for unknown indication
     Dosage: UNK
     Route: 048
     Dates: start: 20151119, end: 20151217
  40. METOCLOPRAMIDE [Concomitant]
     Active Substance: METOCLOPRAMIDE
     Indication: Prophylaxis
     Dosage: 10 MILLIGRAM
     Route: 048
     Dates: start: 20151203
  41. METOCLOPRAMIDE [Concomitant]
     Active Substance: METOCLOPRAMIDE
     Indication: Prophylaxis of nausea and vomiting
     Dosage: 10 MILLIGRAM
     Route: 048
     Dates: start: 20151223
  42. DEXAMETHASONE [Concomitant]
     Active Substance: DEXAMETHASONE
     Indication: Prophylaxis
     Dosage: 8 MILLIGRAM
     Route: 048
     Dates: start: 20151105
  43. DEXAMETHASONE [Concomitant]
     Active Substance: DEXAMETHASONE
     Dosage: 8 MILLIGRAM
     Route: 048
     Dates: start: 20151105
  44. ATORVASTATIN [Concomitant]
     Active Substance: ATORVASTATIN
     Indication: Product used for unknown indication
     Dosage: 40 MILLIGRAM, QD
     Route: 048
     Dates: start: 20170701
  45. ATORVASTATIN [Concomitant]
     Active Substance: ATORVASTATIN
     Dosage: 350 MILLIGRAM, Q3W,
     Route: 048
  46. ATORVASTATIN [Concomitant]
     Active Substance: ATORVASTATIN
     Dosage: 40 MILLIGRAM, QD
     Route: 048
     Dates: start: 20170701
  47. TRAMADOL HYDROCHLORIDE [Concomitant]
     Active Substance: TRAMADOL HYDROCHLORIDE
     Indication: Prophylaxis
     Dosage: 50 MILLIGRAM
     Route: 048
     Dates: start: 20151105
  48. CLOPIDOGREL [Concomitant]
     Active Substance: CLOPIDOGREL BISULFATE
     Indication: Product used for unknown indication
     Dosage: UNK
     Route: 048
     Dates: start: 20170701
  49. TRIMETHOPRIM [Concomitant]
     Active Substance: TRIMETHOPRIM
     Indication: Urinary tract infection
     Dosage: 400 MILLIGRAM, QD, 200 MG, BID
     Route: 048
     Dates: start: 20151210
  50. TRIMETHOPRIM [Concomitant]
     Active Substance: TRIMETHOPRIM
     Dosage: 200 MILLIGRAM, BID, 400 MG
     Route: 048
     Dates: start: 20151210
  51. TRIMETHOPRIM [Concomitant]
     Active Substance: TRIMETHOPRIM
     Dosage: 200 MILLIGRAM, QD, 200 MG, 0.5
     Route: 048
     Dates: start: 20151210
  52. TRIMETHOPRIM [Concomitant]
     Active Substance: TRIMETHOPRIM
     Dosage: 200 MILLIGRAM, QD
     Route: 048
     Dates: start: 20151210
  53. TRIMETHOPRIM [Concomitant]
     Active Substance: TRIMETHOPRIM
     Dosage: 400 MILLIGRAM,  (200 MG, 2X/DAY)
     Route: 048
     Dates: start: 20151210
  54. LOPERAMIDE [Concomitant]
     Active Substance: LOPERAMIDE
     Indication: Prophylaxis
     Dosage: 2 MILLIGRAM, 4 TABLET TWICE A DAY FOR 3 DAYS
     Route: 048
     Dates: start: 20151203
  55. LOPERAMIDE [Concomitant]
     Active Substance: LOPERAMIDE
     Indication: Prophylaxis against diarrhoea
     Dosage: 2 MILLIGRAM, BID,
     Route: 048
     Dates: start: 20151203
  56. LOPERAMIDE [Concomitant]
     Active Substance: LOPERAMIDE
     Dosage: 4 DOSAGE FORM, BID
     Route: 048
     Dates: start: 20151203
  57. LOPERAMIDE [Concomitant]
     Active Substance: LOPERAMIDE
     Dosage: 8 DOSAGE FORM, QD
     Route: 048
     Dates: start: 20151203
  58. RAMIPRIL [Concomitant]
     Active Substance: RAMIPRIL
     Indication: Product used for unknown indication
     Dosage: 2.5 MILLIGRAM QD, START 23-MAY-2017
     Route: 048
  59. RAMIPRIL [Concomitant]
     Active Substance: RAMIPRIL
     Dosage: 1.25 MILLIGRAM, H
     Route: 048
  60. RAMIPRIL [Concomitant]
     Active Substance: RAMIPRIL
     Dosage: 1.25 MG, EVERY 1 DAY(START 23-MAY-2017)
     Route: 048
     Dates: start: 20170523
  61. RAMIPRIL [Concomitant]
     Active Substance: RAMIPRIL
     Dosage: 2.5 MILLIGRAM, (1.25 MG, 2X/DAY)
     Route: 048
     Dates: start: 20170523
  62. RAMIPRIL [Concomitant]
     Active Substance: RAMIPRIL
     Dosage: 1.25 MG, (1.25 MG, EVERY 0.5 DAY)
     Route: 048
     Dates: start: 20170523
  63. RAMIPRIL [Concomitant]
     Active Substance: RAMIPRIL
     Dosage: 2.5 MILLIGRAM, QD,
     Route: 048
     Dates: start: 20170523
  64. RAMIPRIL [Concomitant]
     Active Substance: RAMIPRIL
     Dosage: 1.25 MILLIGRAM
     Route: 048
     Dates: start: 20170523
  65. ASPIRIN [Concomitant]
     Active Substance: ASPIRIN
     Indication: Product used for unknown indication
     Dosage: 75 MILLIGRAM, QD
     Route: 048
     Dates: start: 20170523, end: 20170701
  66. ASPIRIN [Concomitant]
     Active Substance: ASPIRIN
     Dosage: UNK
     Route: 065
  67. LANSOPRAZOLE [Concomitant]
     Active Substance: LANSOPRAZOLE
     Indication: Product used for unknown indication
     Dosage: 30 MILLIGRAM, QD,
     Route: 048
  68. LANSOPRAZOLE [Concomitant]
     Active Substance: LANSOPRAZOLE
     Dosage: 30 MILLIGRAM, QD,  (30 MG, 1X/DAY)
     Route: 048
     Dates: start: 20170312
  69. LANSOPRAZOLE [Concomitant]
     Active Substance: LANSOPRAZOLE
     Dosage: 30 MILLIGRAM, QD
     Route: 048
     Dates: start: 20170312
  70. LANSOPRAZOLE [Concomitant]
     Active Substance: LANSOPRAZOLE
     Dosage: 30 MG, QD, (CUM DOSE 14010.0 MG)
     Route: 048
     Dates: start: 20170312
  71. CETIRIZINE [Concomitant]
     Active Substance: CETIRIZINE HYDROCHLORIDE
     Indication: Prophylaxis
     Dosage: 1 TABLET AT NIGHT FOR 3 DAYS
     Route: 048
     Dates: start: 20151203
  72. CETIRIZINE [Concomitant]
     Active Substance: CETIRIZINE HYDROCHLORIDE
     Indication: Antiviral prophylaxis
     Dosage: 10 MG, (1 TABLET AT NIGHT FOR 3 DAYS)
     Route: 048
     Dates: start: 20151203
  73. CHLORHEXIDINE GLUCONATE [Concomitant]
     Active Substance: CHLORHEXIDINE GLUCONATE
     Indication: Prophylaxis
     Dosage: 4 DOSAGE FORM, QD, 4 , QD
     Route: 048
  74. CHLORHEXIDINE GLUCONATE [Concomitant]
     Active Substance: CHLORHEXIDINE GLUCONATE
     Dosage: UNK, QD
     Route: 048
  75. CHLORHEXIDINE GLUCONATE [Concomitant]
     Active Substance: CHLORHEXIDINE GLUCONATE
     Dosage: UNK, MOUTHWASH
     Route: 048
     Dates: start: 20151105
  76. CHLORHEXIDINE GLUCONATE [Concomitant]
     Active Substance: CHLORHEXIDINE GLUCONATE
     Dosage: UNK, QD, 4 UNK, 1X/DAY (MOUTHWASH)
     Route: 048
     Dates: start: 20151105
  77. CHLORHEXIDINE GLUCONATE [Concomitant]
     Active Substance: CHLORHEXIDINE GLUCONATE
     Dosage: (4 EVERY 1 DAY (MOUTHWASH))
     Route: 048
     Dates: start: 20151105
  78. CHLORHEXIDINE GLUCONATE [Concomitant]
     Active Substance: CHLORHEXIDINE GLUCONATE
     Dosage: UNK, QD, (4(NO UNIT REPORTED) EVERY 1 DAY
     Route: 048
     Dates: start: 20151105
  79. CHLORHEXIDINE GLUCONATE [Concomitant]
     Active Substance: CHLORHEXIDINE GLUCONATE
     Dosage: 4 DOSAGE FORM, QD,UNK,
     Route: 048
     Dates: start: 20151105
  80. RANITIDINE [Concomitant]
     Active Substance: RANITIDINE
     Indication: Prophylaxis
     Dosage: 150 MILLIGRAM
     Route: 048
     Dates: start: 20151203
  81. RANITIDINE [Concomitant]
     Active Substance: RANITIDINE
     Dosage: 1 TABLET TWICE A DAY FOR 3 DAYS
     Route: 048
     Dates: start: 20151203
  82. EZETIMIBE [Concomitant]
     Active Substance: EZETIMIBE
     Indication: Product used for unknown indication
     Dosage: UNK (DOSE FORM:245) START: 2019
     Route: 048
     Dates: start: 2019
  83. ROSUVASTATIN [Concomitant]
     Active Substance: ROSUVASTATIN
     Indication: Product used for unknown indication
     Dosage: 5 MILLIGRAM, (START JUN-2018)
     Route: 048
     Dates: start: 201806, end: 201911
  84. ROSUVASTATIN [Concomitant]
     Active Substance: ROSUVASTATIN
     Dosage: UNK
     Route: 065
  85. ROSUVASTATIN [Concomitant]
     Active Substance: ROSUVASTATIN
     Dosage: 5 MILLIGRAM
     Route: 048
     Dates: start: 201806, end: 201911
  86. ASPIRIN [Concomitant]
     Active Substance: ASPIRIN
     Indication: Product used for unknown indication
     Dosage: 75 MILLIGRAM, QD
     Route: 048
     Dates: start: 20170523, end: 20170701
  87. ASPIRIN [Concomitant]
     Active Substance: ASPIRIN
     Dosage: 75 MILLIGRAM, QD,
     Route: 048
     Dates: start: 20170523, end: 20170701
  88. ASPIRIN [Concomitant]
     Active Substance: ASPIRIN
     Dosage: 75 MILLIGRAM, QD
     Route: 048
     Dates: start: 20170523, end: 20170701
  89. ASPIRIN [Concomitant]
     Active Substance: ASPIRIN
     Dosage: 75 MILLIGRAM, QD
     Route: 048
     Dates: start: 20170701
  90. ROSUVASTATIN CALCIUM [Concomitant]
     Active Substance: ROSUVASTATIN CALCIUM
     Indication: Product used for unknown indication
     Dosage: 5 MILLIGRAM
     Route: 048
     Dates: start: 201806, end: 201911
  91. TRAMADOL [Concomitant]
     Active Substance: TRAMADOL
     Indication: Prophylaxis
     Dosage: 50 MILLIGRAM
     Route: 048
     Dates: start: 20151105
  92. TRAMADOL [Concomitant]
     Active Substance: TRAMADOL
     Dosage: 50 MILLIGRAM, 50 MG (DOSE FORM: 5)
     Route: 065
     Dates: start: 20151105

REACTIONS (22)
  - Escherichia test positive [Not Recovered/Not Resolved]
  - Anaphylactic reaction [Recovered/Resolved]
  - Urosepsis [Recovered/Resolved]
  - Dysuria [Recovered/Resolved]
  - Erythema [Recovered/Resolved]
  - Chest discomfort [Recovered/Resolved]
  - Hypersensitivity [Recovered/Resolved]
  - Tendonitis [Not Recovered/Not Resolved]
  - Dyspnoea [Recovered/Resolved]
  - Urinary tract infection [Recovered/Resolved]
  - Neuropathy peripheral [Recovered/Resolved]
  - Bacterial test positive [Recovered/Resolved]
  - Diarrhoea [Recovered/Resolved]
  - Palmar erythema [Recovered/Resolved]
  - Defaecation urgency [Recovered/Resolved]
  - Fatigue [Recovered/Resolved]
  - Tremor [Recovered/Resolved]
  - Mucosal inflammation [Recovered/Resolved]
  - Cystitis noninfective [Recovered/Resolved]
  - Hypertension [Recovered/Resolved]
  - Malaise [Recovered/Resolved]
  - Rash [Recovered/Resolved]

NARRATIVE: CASE EVENT DATE: 20151201
